FAERS Safety Report 19486198 (Version 4)
Quarter: 2021Q3

REPORT INFORMATION
  Report Type: Spontaneous
  Country: PR (occurrence: US)
  Receive Date: 20210702
  Receipt Date: 20210829
  Transmission Date: 20211014
  Serious: Yes (Other)
  Sender: FDA-Public Use
  Company Number: PR-JNJFOC-20210658040

PATIENT
  Age: 61 Year
  Sex: Female

DRUGS (37)
  1. ELMIRON [Suspect]
     Active Substance: PENTOSAN POLYSULFATE SODIUM
     Indication: CYSTITIS INTERSTITIAL
     Dosage: 100 MG CAPSULES, TWO CAPSULES TWICE A DAY
     Route: 048
     Dates: start: 201402, end: 2020
  2. AMITRIPTYLINE [Concomitant]
     Active Substance: AMITRIPTYLINE
     Indication: DEPRESSION
     Dates: start: 201408
  3. ATORVASTATIN [Concomitant]
     Active Substance: ATORVASTATIN
     Indication: BLOOD CHOLESTEROL DECREASED
     Dates: start: 201904, end: 202012
  4. BUTALBITAL;CAFFEINE;PARACETAMOL [Concomitant]
     Active Substance: ACETAMINOPHEN\BUTABARBITAL\CAFFEINE
     Indication: ANALGESIC THERAPY
     Dates: start: 201402, end: 202012
  5. CARAFATE [Concomitant]
     Active Substance: SUCRALFATE
     Indication: PROPHYLAXIS
     Dates: start: 201812, end: 202012
  6. POTASSIUM CHLORIDE. [Concomitant]
     Active Substance: POTASSIUM CHLORIDE
     Indication: BLOOD POTASSIUM DECREASED
     Dates: start: 201904, end: 202007
  7. ALPRAZOLAM. [Concomitant]
     Active Substance: ALPRAZOLAM
     Indication: ANXIETY
     Dates: start: 201402, end: 201806
  8. MECLIZINE HYDROCHLORIDE. [Concomitant]
     Active Substance: MECLIZINE HYDROCHLORIDE
     Indication: MOTION SICKNESS
     Dates: start: 201402, end: 201806
  9. CETIRIZINE HYDROCHLORIDE. [Concomitant]
     Active Substance: CETIRIZINE HYDROCHLORIDE
     Indication: MULTIPLE ALLERGIES
     Dates: start: 201402, end: 201806
  10. CHLORDIAZEPOXIDE;CLIDINIUM [Concomitant]
     Indication: PROPHYLAXIS
     Dates: start: 201408, end: 201806
  11. PROMETHAZINE [Concomitant]
     Active Substance: PROMETHAZINE HYDROCHLORIDE
     Indication: MULTIPLE ALLERGIES
     Dates: start: 201408, end: 201806
  12. DEPLIN [LEVOMEFOLIC ACID] [Concomitant]
     Indication: NUTRITIONAL SUPPLEMENTATION
     Dates: start: 201402, end: 201609
  13. OMEPRAZOLE. [Concomitant]
     Active Substance: OMEPRAZOLE
     Indication: DYSPEPSIA
  14. PRASUGREL HCL [Concomitant]
     Indication: ISCHAEMIC HEART DISEASE PROPHYLAXIS
  15. AMLODIPINE BESYLATE AND BENAZEPRIL HYDROCHLORIDE [Concomitant]
     Active Substance: AMLODIPINE BESYLATE\BENAZEPRIL HYDROCHLORIDE
     Indication: HYPERTENSION
     Dates: start: 201402, end: 201806
  16. RANITIDINE. [Concomitant]
     Active Substance: RANITIDINE
     Indication: DYSPEPSIA
  17. FLUOXETINE [Concomitant]
     Active Substance: FLUOXETINE HYDROCHLORIDE
     Indication: ANXIETY
     Dates: start: 201402, end: 202012
  18. PRASUGREL HCL [Concomitant]
     Indication: CEREBROVASCULAR ACCIDENT
     Dates: start: 201904, end: 202012
  19. VIBERZI [Concomitant]
     Active Substance: ELUXADOLINE
     Indication: IRRITABLE BOWEL SYNDROME
     Dates: start: 201703, end: 202012
  20. MISOPROSTOL. [Concomitant]
     Active Substance: MISOPROSTOL
     Indication: PROPHYLAXIS
     Dates: start: 201402, end: 201806
  21. PENNSAID [Concomitant]
     Active Substance: DICLOFENAC SODIUM
     Indication: ARTHRITIS
     Dates: start: 201703, end: 201806
  22. AMIODARONE [Concomitant]
     Active Substance: AMIODARONE
     Indication: ARRHYTHMIA
     Dates: start: 201806, end: 202012
  23. CLONIDINE. [Concomitant]
     Active Substance: CLONIDINE
     Indication: HYPERTENSION
     Dates: start: 201812, end: 202012
  24. DILTIAZEM. [Concomitant]
     Active Substance: DILTIAZEM
     Indication: HYPERTENSION
     Dates: start: 201906, end: 202012
  25. CHLORDIAZEPOXIDE. [Concomitant]
     Active Substance: CHLORDIAZEPOXIDE
     Indication: ANXIETY
     Dates: start: 201904, end: 201912
  26. MONTELUKAST [Concomitant]
     Active Substance: MONTELUKAST SODIUM
     Indication: ASTHMA
     Dates: start: 201402
  27. DESLORATADINE. [Concomitant]
     Active Substance: DESLORATADINE
     Indication: HYPERSENSITIVITY
     Dates: start: 201812, end: 202012
  28. VERAPAMIL [Concomitant]
     Active Substance: VERAPAMIL HYDROCHLORIDE
     Indication: HYPERTENSION
     Dates: start: 201806, end: 201912
  29. MOBIC [Concomitant]
     Active Substance: MELOXICAM
     Indication: ARTHRITIS
     Dates: start: 201609, end: 201806
  30. ATENOLOL. [Concomitant]
     Active Substance: ATENOLOL
     Indication: HYPERTENSION
     Dates: start: 201402, end: 202012
  31. ELMIRON [Suspect]
     Active Substance: PENTOSAN POLYSULFATE SODIUM
     Route: 048
     Dates: start: 201403
  32. OMEPRAZOLE. [Concomitant]
     Active Substance: OMEPRAZOLE
     Indication: DYSPEPSIA
     Dates: start: 201402
  33. MACROBID [Concomitant]
     Active Substance: NITROFURANTOIN\NITROFURANTOIN MONOHYDRATE
     Indication: PROPHYLAXIS
     Dates: start: 201408, end: 202012
  34. BENAZEPRIL [Concomitant]
     Active Substance: BENAZEPRIL HYDROCHLORIDE
     Indication: HYPERTENSION
     Dates: start: 201904, end: 202012
  35. DICYCLOMINE HYDROCHLORIDE. [Concomitant]
     Active Substance: DICYCLOMINE HYDROCHLORIDE
     Indication: IRRITABLE BOWEL SYNDROME
     Dates: start: 201703, end: 202012
  36. RANITIDINE. [Concomitant]
     Active Substance: RANITIDINE
     Indication: DYSPEPSIA
     Dates: start: 201402, end: 201912
  37. DICLOFENAC POTASSIUM. [Concomitant]
     Active Substance: DICLOFENAC POTASSIUM
     Indication: ANALGESIC THERAPY
     Dates: start: 201402, end: 201806

REACTIONS (4)
  - Macular degeneration [Not Recovered/Not Resolved]
  - Off label use [Unknown]
  - Maculopathy [Unknown]
  - Product use issue [Unknown]

NARRATIVE: CASE EVENT DATE: 201402
